FAERS Safety Report 15775886 (Version 1)
Quarter: 2018Q4

REPORT INFORMATION
  Report Type: Spontaneous
  Country: US (occurrence: US)
  Receive Date: 20181231
  Receipt Date: 20181231
  Transmission Date: 20190205
  Serious: Yes (Other)
  Sender: FDA-Public Use
  Company Number: US-TORRENT-00007331

PATIENT
  Sex: Male
  Weight: 77 kg

DRUGS (1)
  1. LOSARTAN. [Suspect]
     Active Substance: LOSARTAN
     Indication: HYPERTENSION
     Dates: start: 201811, end: 20181216

REACTIONS (5)
  - Chills [Recovering/Resolving]
  - Hallucination [Recovered/Resolved]
  - Nightmare [Recovered/Resolved]
  - Headache [Recovering/Resolving]
  - Psychotic disorder [Recovered/Resolved]
